FAERS Safety Report 19565752 (Version 1)
Quarter: 2021Q3

REPORT INFORMATION
  Report Type: Other
  Country: GB (occurrence: GB)
  Receive Date: 20210716
  Receipt Date: 20210716
  Transmission Date: 20211014
  Serious: No
  Sender: FDA-Public Use
  Company Number: GB-LUPIN PHARMACEUTICALS INC.-2021-11536

PATIENT
  Age: 34 Year
  Sex: Female

DRUGS (2)
  1. EMTRICITABINE/TENOFOVIR [Suspect]
     Active Substance: EMTRICITABINE\TENOFOVIR
     Indication: ANTIRETROVIRAL THERAPY
     Dosage: 445 UNK, QD, (UNITS UNSPECIFIED), TOTAL DAILY DOSE, 1 COURSE
     Route: 048
  2. NEVIRAPINE. [Suspect]
     Active Substance: NEVIRAPINE
     Indication: ANTIRETROVIRAL THERAPY
     Dosage: 400 UNK, QD, 400 (UNITS UNSPECIFIED), TOTAL DAILY DOSE, 1 COURSE
     Route: 048

REACTIONS (3)
  - Normal newborn [Unknown]
  - No adverse event [Unknown]
  - Exposure during pregnancy [Unknown]
